FAERS Safety Report 25259352 (Version 1)
Quarter: 2025Q2

REPORT INFORMATION
  Report Type: Spontaneous
  Country: US (occurrence: None)
  Receive Date: 20250430
  Receipt Date: 20250430
  Transmission Date: 20250717
  Serious: Yes (Hospitalization, Other)
  Sender: FDA-CTU
  Company Number: None

PATIENT
  Age: 39 Year
  Sex: Female
  Weight: 84.6 kg

DRUGS (8)
  1. CEFDINIR [Suspect]
     Active Substance: CEFDINIR
     Indication: Sinusitis
     Dosage: FREQUENCY : TWICE A DAY;?
     Route: 048
     Dates: start: 20250421, end: 20250427
  2. WAKIX [Concomitant]
     Active Substance: PITOLISANT HYDROCHLORIDE
  3. busperone [Concomitant]
  4. LUNESTA [Concomitant]
     Active Substance: ESZOPICLONE
  5. CYMBALTA [Concomitant]
     Active Substance: DULOXETINE HYDROCHLORIDE
  6. GABAPENTIN [Concomitant]
     Active Substance: GABAPENTIN
  7. SYMBICORT [Concomitant]
     Active Substance: BUDESONIDE\FORMOTEROL FUMARATE DIHYDRATE
  8. ALBUTEROL [Concomitant]
     Active Substance: ALBUTEROL

REACTIONS (4)
  - Dizziness [None]
  - Syncope [None]
  - Aphasia [None]
  - Immobile [None]

NARRATIVE: CASE EVENT DATE: 20250423
